FAERS Safety Report 16596451 (Version 18)
Quarter: 2024Q3

REPORT INFORMATION
  Report Type: Report from Study
  Country: CA (occurrence: CA)
  Receive Date: 20190719
  Receipt Date: 20240819
  Transmission Date: 20241017
  Serious: Yes (Other)
  Sender: ROCHE
  Company Number: CA-002147023-PHHY2019CA160600

PATIENT
  Age: 45 Year
  Sex: Female
  Weight: 89.0 kg

DRUGS (14)
  1. XOLAIR [Suspect]
     Active Substance: OMALIZUMAB
     Indication: Chronic spontaneous urticaria
     Route: 058
     Dates: start: 20190628
  2. XOLAIR [Suspect]
     Active Substance: OMALIZUMAB
     Route: 058
     Dates: start: 20190828
  3. XOLAIR [Suspect]
     Active Substance: OMALIZUMAB
     Route: 058
     Dates: start: 20190927
  4. XOLAIR [Suspect]
     Active Substance: OMALIZUMAB
     Route: 058
     Dates: start: 20200117
  5. XOLAIR [Suspect]
     Active Substance: OMALIZUMAB
     Route: 058
  6. XOLAIR [Suspect]
     Active Substance: OMALIZUMAB
     Route: 058
     Dates: start: 20190702
  7. XOLAIR [Suspect]
     Active Substance: OMALIZUMAB
     Dosage: 300 MG, EVERY 4 WEEKS
     Route: 058
     Dates: start: 20230621
  8. XOLAIR [Suspect]
     Active Substance: OMALIZUMAB
     Dosage: 300 MG, EVERY 4 WEEKS
     Route: 058
  9. SPIRIVA [Concomitant]
     Active Substance: TIOTROPIUM BROMIDE MONOHYDRATE
     Indication: Product used for unknown indication
     Dosage: 2 DF, PRN
     Route: 055
     Dates: start: 201804
  10. BENADRYL [Concomitant]
     Active Substance: DIPHENHYDRAMINE HYDROCHLORIDE
     Indication: Product used for unknown indication
     Dosage: 1 DF, QID
     Route: 048
     Dates: start: 201808
  11. EFFEXOR [Concomitant]
     Active Substance: VENLAFAXINE HYDROCHLORIDE
     Indication: Product used for unknown indication
     Dosage: 1 DF, QD
     Route: 048
     Dates: start: 1999
  12. CETIRIZINE HYDROCHLORIDE [Concomitant]
     Active Substance: CETIRIZINE HYDROCHLORIDE
     Indication: Product used for unknown indication
     Dosage: 1 DF, BID
     Route: 048
     Dates: start: 201812
  13. APRESOLINE HYDROCHLORIDE [Concomitant]
     Active Substance: HYDRALAZINE HYDROCHLORIDE
     Indication: Product used for unknown indication
     Dosage: 1 DF, QD
     Route: 048
     Dates: start: 1999
  14. TRAZODONE [Concomitant]
     Active Substance: TRAZODONE HYDROCHLORIDE
     Indication: Product used for unknown indication
     Dosage: 1 DF, QD
     Route: 048
     Dates: start: 1999

REACTIONS (50)
  - Behcet^s syndrome [Unknown]
  - Pulmonary congestion [Unknown]
  - Type 2 diabetes mellitus [Unknown]
  - Autoimmune disorder [Unknown]
  - Symptom recurrence [Unknown]
  - Productive cough [Unknown]
  - Sputum discoloured [Unknown]
  - Respiratory tract congestion [Not Recovered/Not Resolved]
  - Head discomfort [Unknown]
  - Neck pain [Unknown]
  - Dysphonia [Unknown]
  - Weight decreased [Unknown]
  - Toothache [Unknown]
  - Fatigue [Not Recovered/Not Resolved]
  - Sinus pain [Unknown]
  - Oral pain [Unknown]
  - Peripheral swelling [Not Recovered/Not Resolved]
  - Aphthous ulcer [Unknown]
  - Dry mouth [Unknown]
  - Feeling abnormal [Unknown]
  - Glossodynia [Unknown]
  - Ageusia [Unknown]
  - Skin lesion [Not Recovered/Not Resolved]
  - Pruritus [Not Recovered/Not Resolved]
  - Sinus disorder [Unknown]
  - Cough [Unknown]
  - Chest discomfort [Unknown]
  - Burning sensation [Unknown]
  - Paraesthesia [Unknown]
  - Hypoaesthesia [Unknown]
  - Mouth ulceration [Unknown]
  - Illness [Unknown]
  - Erythema [Unknown]
  - Fungal infection [Unknown]
  - Conjunctivitis [Unknown]
  - Blister [Unknown]
  - Mass [Unknown]
  - Eczema [Unknown]
  - Road traffic accident [Unknown]
  - Sinusitis [Unknown]
  - Pharyngitis [Unknown]
  - Arthralgia [Unknown]
  - Urticaria [Recovered/Resolved]
  - Nasal congestion [Unknown]
  - Angioedema [Unknown]
  - Swollen tongue [Unknown]
  - Oropharyngeal pain [Not Recovered/Not Resolved]
  - Nasopharyngitis [Recovering/Resolving]
  - Pain [Unknown]
  - Influenza like illness [Not Recovered/Not Resolved]

NARRATIVE: CASE EVENT DATE: 20190723
